FAERS Safety Report 9213509 (Version 2)
Quarter: 2013Q2

REPORT INFORMATION
  Report Type: Spontaneous
  Country: US (occurrence: US)
  Receive Date: 20130405
  Receipt Date: 20130528
  Transmission Date: 20140414
  Serious: Yes (Hospitalization, Other)
  Sender: FDA-Public Use
  Company Number: US-AMGEN-USASP2013022853

PATIENT
  Age: 64 Year
  Sex: Male
  Weight: 76.19 kg

DRUGS (4)
  1. ARANESP [Suspect]
     Indication: RENAL FAILURE CHRONIC
     Dosage: 1000 MUG, QWK
     Route: 058
     Dates: start: 2011
  2. ARANESP [Suspect]
  3. TACROLIMUS [Concomitant]
     Indication: TRANSPLANT REJECTION
     Dosage: 6 MG, QD
     Route: 048
  4. PROCRIT                            /00909301/ [Concomitant]

REACTIONS (1)
  - Anaemia [Unknown]
